FAERS Safety Report 7822057-8 (Version None)
Quarter: 2011Q4

REPORT INFORMATION
  Report Type: 
  Country: None (occurrence: None)
  Receive Date: 20111018
  Receipt Date: 20111011
  Transmission Date: 20120403
  Serious: Yes (Other)
  Sender: FDA-Public Use
  Company Number: PHHY2011BR90705

PATIENT
  Sex: Female

DRUGS (1)
  1. SANDOSTATIN LAR [Suspect]

REACTIONS (5)
  - DIARRHOEA [None]
  - ASTHENIA [None]
  - AMNESIA [None]
  - ABDOMINAL DISTENSION [None]
  - HYPOPITUITARISM [None]
